FAERS Safety Report 12501314 (Version 1)
Quarter: 2016Q2

REPORT INFORMATION
  Report Type: Report from Study
  Country: FR (occurrence: FR)
  Receive Date: 20160627
  Receipt Date: 20160627
  Transmission Date: 20160815
  Serious: Yes (Life-Threatening, Hospitalization, Other)
  Sender: FDA-Public Use
  Company Number: FR-SEATTLE GENETICS-2016SGN00150

PATIENT

DRUGS (1)
  1. BRENTUXIMAB VEDOTIN [Suspect]
     Active Substance: BRENTUXIMAB VEDOTIN
     Indication: HODGKIN^S DISEASE
     Dosage: 1.8 MG/KG, UNK
     Route: 042
     Dates: start: 20140730, end: 20151204

REACTIONS (9)
  - Adverse event [Unknown]
  - Full blood count abnormal [Unknown]
  - Aspergillus infection [Recovered/Resolved]
  - Pneumonia [Recovered/Resolved with Sequelae]
  - Off label use [Unknown]
  - Rash maculo-papular [Recovered/Resolved]
  - Respiratory failure [Recovered/Resolved with Sequelae]
  - Infection [Recovered/Resolved]
  - Neuropathy peripheral [Recovered/Resolved]

NARRATIVE: CASE EVENT DATE: 2014
